FAERS Safety Report 8266219-7 (Version None)
Quarter: 2012Q2

REPORT INFORMATION
  Report Type: 
  Country: None (occurrence: None)
  Receive Date: 20120406
  Receipt Date: 20120329
  Transmission Date: 20120825
  Serious: Yes (Hospitalization, Other)
  Sender: FDA-Public Use
  Company Number: GB-FRI-1000029584

PATIENT
  Age: 74 Year
  Sex: Male
  Weight: 80 kg

DRUGS (4)
  1. CITALOPRAM HYDROBROMIDE [Suspect]
     Indication: DEPRESSED MOOD
     Dosage: 10 MG
     Route: 048
     Dates: start: 20111213, end: 20111230
  2. SAW PALMETTO [Concomitant]
     Indication: PROSTATIC DISORDER
     Dosage: CONSUMING LEAVES IN TEA ON A DAILY BASIS
  3. BENDROFLUMETHIAZIDE [Concomitant]
     Indication: HYPERTENSION
     Dosage: 2.5 MG
     Route: 048
     Dates: start: 20030101
  4. VITAMIN D [Concomitant]
     Dosage: DAILY

REACTIONS (4)
  - HYPONATRAEMIA [None]
  - DYSARTHRIA [None]
  - TREMOR [None]
  - MEMORY IMPAIRMENT [None]
